FAERS Safety Report 6124255-0 (Version None)
Quarter: 2009Q1

REPORT INFORMATION
  Report Type: 
  Country: None (occurrence: None)
  Receive Date: 20090319
  Receipt Date: 20090313
  Transmission Date: 20090719
  Serious: Yes (Hospitalization)
  Sender: FDA-Public Use
  Company Number: US-WATSON-2009-01741

PATIENT
  Age: 55 Year
  Sex: Female

DRUGS (4)
  1. COLCHICINE (WATSON LABORATORIES) [Suspect]
     Indication: PERICARDITIS
     Dosage: 0.6 MG, DAILY
     Route: 048
     Dates: start: 20081222
  2. COLCHICINE (WATSON LABORATORIES) [Suspect]
     Dosage: 0.6 MG, BID
     Route: 048
     Dates: start: 20060501, end: 20070401
  3. ZYVOX [Suspect]
     Indication: PERICARDITIS
     Dosage: UNK
     Route: 065
     Dates: start: 20070401, end: 20070501
  4. STEROIDS [Concomitant]
     Indication: PERICARDITIS
     Dosage: UNK
     Route: 065
     Dates: start: 20060401

REACTIONS (15)
  - ABDOMINAL DISCOMFORT [None]
  - ASTHENIA [None]
  - BONE MARROW FAILURE [None]
  - CHEST PAIN [None]
  - DIPLOPIA [None]
  - DRUG INTERACTION [None]
  - DYSPNOEA [None]
  - EYELID PTOSIS [None]
  - HAEMOGLOBIN DECREASED [None]
  - MUSCULAR WEAKNESS [None]
  - MYASTHENIA GRAVIS [None]
  - OCULAR MYASTHENIA [None]
  - PHOTOPHOBIA [None]
  - VISION BLURRED [None]
  - VISUAL IMPAIRMENT [None]
